FAERS Safety Report 9068980 (Version 1)
Quarter: 2013Q1

REPORT INFORMATION
  Report Type: Spontaneous
  Country: US (occurrence: US)
  Receive Date: 20130215
  Receipt Date: 20130215
  Transmission Date: 20140127
  Serious: Yes (Death)
  Sender: FDA-Public Use
  Company Number: US-BANPHARM-20130747

PATIENT
  Age: 42 Year
  Sex: Male

DRUGS (2)
  1. DIPHENHYDRAMINE [Suspect]
  2. QUETIAPINE [Suspect]

REACTIONS (2)
  - Completed suicide [Fatal]
  - Cardio-respiratory arrest [Fatal]
